FAERS Safety Report 19471015 (Version 1)
Quarter: 2021Q2

REPORT INFORMATION
  Report Type: Other
  Country: IT (occurrence: IT)
  Receive Date: 20210629
  Receipt Date: 20210629
  Transmission Date: 20210717
  Serious: Yes (Life-Threatening, Hospitalization, Other)
  Sender: FDA-Public Use
  Company Number: IT-WES PHARMA INC-2113242

PATIENT
  Age: 55 Year
  Sex: Female

DRUGS (7)
  1. BROMAZEPAM [Suspect]
     Active Substance: BROMAZEPAM
     Route: 065
  2. OXYCODONE/NALOXONE [Suspect]
     Active Substance: NALOXONE HYDROCHLORIDE\OXYCODONE HYDROCHLORIDE
     Route: 065
  3. ACETAMINOPHEN AND CODEINE [Suspect]
     Active Substance: ACETAMINOPHEN\CODEINE PHOSPHATE
     Indication: PAIN
     Route: 065
  4. TRAMADOL. [Suspect]
     Active Substance: TRAMADOL
     Route: 065
  5. CARBAMAZEPINE. [Suspect]
     Active Substance: CARBAMAZEPINE
     Route: 065
  6. PREGABALIN. [Suspect]
     Active Substance: PREGABALIN
     Route: 065
  7. ACETAMINOPHEN. [Suspect]
     Active Substance: ACETAMINOPHEN
     Route: 065

REACTIONS (12)
  - Hypokalaemia [Recovered/Resolved]
  - Mydriasis [Unknown]
  - Drug interaction [Unknown]
  - Toxicity to various agents [Unknown]
  - Hypothermia [Recovered/Resolved]
  - Hepatitis acute [Recovered/Resolved]
  - Hypotension [Recovered/Resolved]
  - Atrial fibrillation [Recovered/Resolved]
  - Bradypnoea [Recovered/Resolved]
  - Lactic acidosis [Recovered/Resolved]
  - Coma [Unknown]
  - Bradycardia [Recovered/Resolved]
